FAERS Safety Report 16802890 (Version 1)
Quarter: 2019Q3

REPORT INFORMATION
  Report Type: Spontaneous
  Country: TH (occurrence: TH)
  Receive Date: 20190913
  Receipt Date: 20190913
  Transmission Date: 20191005
  Serious: Yes (Other)
  Sender: FDA-Public Use
  Company Number: PHHY2019TH208009

PATIENT
  Age: 62 Year
  Sex: Male

DRUGS (2)
  1. ZYKADIA [Suspect]
     Active Substance: CERITINIB
     Dosage: 150 OT, BID (2X1)
     Route: 048
     Dates: start: 20190525
  2. ZYKADIA [Suspect]
     Active Substance: CERITINIB
     Indication: LUNG ADENOCARCINOMA
     Dosage: 150 OT, TID (3X1)
     Route: 048
     Dates: start: 20190227

REACTIONS (13)
  - Metastases to lung [Unknown]
  - Metastases to liver [Unknown]
  - Blood potassium decreased [Recovered/Resolved]
  - Metastases to bone [Unknown]
  - Pleural effusion [Unknown]
  - Bradycardia [Unknown]
  - Hepatic lesion [Unknown]
  - Diarrhoea [Recovering/Resolving]
  - Emphysema [Unknown]
  - Decreased appetite [Recovering/Resolving]
  - Bronchiectasis [Unknown]
  - Pulmonary mass [Unknown]
  - Bone lesion [Unknown]

NARRATIVE: CASE EVENT DATE: 20190321
